FAERS Safety Report 13976707 (Version 1)
Quarter: 2017Q3

REPORT INFORMATION
  Report Type: Spontaneous
  Country: US (occurrence: US)
  Receive Date: 20170915
  Receipt Date: 20170915
  Transmission Date: 20171128
  Serious: No
  Sender: FDA-Public Use
  Company Number: US-TEVA-760796USA

PATIENT
  Age: 5 Year

DRUGS (1)
  1. METHOTREXATE. [Suspect]
     Active Substance: METHOTREXATE
     Dosage: 25 MG/ML, 50 MG
     Route: 048

REACTIONS (1)
  - Intercepted drug administration error [Unknown]

NARRATIVE: CASE EVENT DATE: 20170412
